FAERS Safety Report 9466042 (Version 1)
Quarter: 2013Q3

REPORT INFORMATION
  Report Type: Spontaneous
  Country: US (occurrence: None)
  Receive Date: 20130816
  Receipt Date: 20130816
  Transmission Date: 20140515
  Serious: Yes (Life-Threatening, Hospitalization)
  Sender: FDA-Public Use
  Company Number: None

PATIENT
  Age: 82 Year
  Sex: Female
  Weight: 61.24 kg

DRUGS (1)
  1. TORADOL [Suspect]
     Indication: PAIN PROPHYLAXIS
     Dates: start: 20130711, end: 20130711

REACTIONS (2)
  - Electrolyte imbalance [None]
  - Angioedema [None]
